FAERS Safety Report 11170757 (Version 1)
Quarter: 2015Q2

REPORT INFORMATION
  Report Type: Spontaneous
  Country: US (occurrence: None)
  Receive Date: 20150515
  Receipt Date: 20150515
  Transmission Date: 20150821
  Serious: Yes (Hospitalization)
  Sender: FDA-Public Use
  Company Number: 097897

PATIENT
  Age: 35 Year
  Sex: Female
  Weight: 71.2 kg

DRUGS (9)
  1. CIMZIA [Suspect]
     Active Substance: CERTOLIZUMAB PEGOL
     Indication: CROHN^S DISEASE
     Dosage: EXPIRY DATE: APR-2016 TAKING FOR PPROX 4 YEARS, SUBCUTANEOUS
     Route: 058
     Dates: start: 20090307, end: 2014
  2. PHENERGAN [Concomitant]
     Active Substance: PROMETHAZINE HYDROCHLORIDE
  3. NORCO (HYDROCODONE BITARTRATE;PARACETAMOL) [Concomitant]
  4. NORMAL SALINE (SODIUM CHLORIDE) [Concomitant]
  5. LOMOTIL (ATROPINE SULFATE;DIPHENOXYLATE HYDROCHLORIDE) [Concomitant]
  6. XANAX [Concomitant]
     Active Substance: ALPRAZOLAM
  7. LASIX [Concomitant]
     Active Substance: FUROSEMIDE
  8. PROTONIX [Concomitant]
     Active Substance: PANTOPRAZOLE SODIUM
  9. VALTREX [Concomitant]
     Active Substance: VALACYCLOVIR HYDROCHLORIDE

REACTIONS (15)
  - Crohn^s disease [None]
  - Epistaxis [None]
  - Paraesthesia [None]
  - Rectal haemorrhage [None]
  - Dizziness [None]
  - Hypoaesthesia [None]
  - Bone pain [None]
  - Inappropriate schedule of drug administration [None]
  - Drug ineffective [None]
  - Vision blurred [None]
  - Vomiting [None]
  - Nausea [None]
  - Headache [None]
  - Fatigue [None]
  - Nasal disorder [None]

NARRATIVE: CASE EVENT DATE: 20130911
